FAERS Safety Report 15710305 (Version 1)
Quarter: 2018Q4

REPORT INFORMATION
  Report Type: Spontaneous
  Country: GB (occurrence: GB)
  Receive Date: 20181211
  Receipt Date: 20181211
  Transmission Date: 20190205
  Serious: Yes (Congenital Anomaly)
  Sender: FDA-Public Use
  Company Number: GB-TEVA-2018-GB-985105

PATIENT
  Age: 2 Day

DRUGS (1)
  1. METHOTREXATE. [Suspect]
     Active Substance: METHOTREXATE
     Route: 064
     Dates: start: 20070810

REACTIONS (2)
  - Cardiomegaly [Not Recovered/Not Resolved]
  - Ebstein^s anomaly [Not Recovered/Not Resolved]

NARRATIVE: CASE EVENT DATE: 20080425
